FAERS Safety Report 20631202 (Version 2)
Quarter: 2022Q2

REPORT INFORMATION
  Report Type: Spontaneous
  Country: BR (occurrence: None)
  Receive Date: 20220324
  Receipt Date: 20220409
  Transmission Date: 20220721
  Serious: Yes (Other)
  Sender: FDA-Public Use
  Company Number: BR-Orion Corporation ORION PHARMA-ENT 2022-0037

PATIENT

DRUGS (1)
  1. COMTAN [Suspect]
     Active Substance: ENTACAPONE
     Indication: Parkinson^s disease
     Dosage: TAKE 3 TABLETS A DAY AND SPENT WEEKS TAKING 2 FOR SPARE AND HAVE MEDICATION FOR MORE DAYS
     Route: 065

REACTIONS (3)
  - Parkinson^s disease [Unknown]
  - Product availability issue [Unknown]
  - Intentional product use issue [Unknown]
